FAERS Safety Report 7511629-6 (Version None)
Quarter: 2011Q2

REPORT INFORMATION
  Report Type: 
  Country: None (occurrence: None)
  Receive Date: 20110531
  Receipt Date: 20110517
  Transmission Date: 20111010
  Serious: Yes (Hospitalization, Other)
  Sender: FDA-Public Use
  Company Number: US-PFIZER INC-2010162834

PATIENT
  Sex: Male
  Weight: 3.68 kg

DRUGS (8)
  1. MYCOPHENOLATE MEFETIL [Suspect]
     Dosage: UNK
     Route: 064
     Dates: end: 20100101
  2. FISH OIL [Concomitant]
     Dosage: 1000 MG, Q4WK
     Route: 064
  3. NORVASC [Suspect]
     Dosage: UNK
     Route: 064
     Dates: end: 20100101
  4. ENBREL [Suspect]
     Dosage: UNK
     Route: 063
     Dates: start: 20101201
  5. METHYLDOPA [Suspect]
     Indication: HYPERTENSION
     Dosage: 250 MG, 3X/DAY
     Route: 064
     Dates: start: 20100101
  6. ENBREL [Suspect]
     Indication: PSORIASIS
     Dosage: 25 MG, 2 TIMES/WK
     Route: 064
     Dates: start: 20030101
  7. PRENATAL VITAMINS [Concomitant]
  8. INFANT FORMULAS [Concomitant]
     Dosage: UNK

REACTIONS (9)
  - URINARY TRACT INFECTION [None]
  - DRUG EXPOSURE DURING PREGNANCY [None]
  - BACTERAEMIA [None]
  - RESUSCITATION [None]
  - JAUNDICE [None]
  - DRUG EXPOSURE VIA BREAST MILK [None]
  - DEHYDRATION [None]
  - WEIGHT DECREASE NEONATAL [None]
  - SEPSIS [None]
